FAERS Safety Report 19715027 (Version 1)
Quarter: 2021Q3

REPORT INFORMATION
  Report Type: Other
  Country: JP (occurrence: JP)
  Receive Date: 20210818
  Receipt Date: 20210818
  Transmission Date: 20211014
  Serious: Yes (Death, Other)
  Sender: FDA-Public Use
  Company Number: JP-ROCHE-2280120

PATIENT
  Age: 61 Year
  Sex: Female
  Weight: 34.1 kg

DRUGS (3)
  1. RITUXIMAB. [Suspect]
     Active Substance: RITUXIMAB
     Indication: IMMUNE TOLERANCE INDUCTION
     Route: 041
     Dates: start: 20100620, end: 20100620
  2. CHLOR?TRIMETON [Concomitant]
     Active Substance: CHLORPHENIRAMINE MALEATE
     Indication: PREMEDICATION
     Route: 042
     Dates: start: 20100620, end: 20100620
  3. SOLU?CORTEF [Concomitant]
     Active Substance: HYDROCORTISONE SODIUM SUCCINATE
     Indication: PREMEDICATION
     Route: 042
     Dates: start: 20100620, end: 20100620

REACTIONS (4)
  - Cytomegalovirus test positive [Recovered/Resolved]
  - Off label use [Unknown]
  - Cytomegalovirus infection [Recovered/Resolved]
  - Pneumonia bacterial [Fatal]

NARRATIVE: CASE EVENT DATE: 20100809
